FAERS Safety Report 17305759 (Version 1)
Quarter: 2020Q1

REPORT INFORMATION
  Report Type: Spontaneous
  Country: FR (occurrence: FR)
  Receive Date: 20200123
  Receipt Date: 20200123
  Transmission Date: 20200409
  Serious: Yes (Hospitalization)
  Sender: FDA-Public Use
  Company Number: FR-PFIZER INC-2020026761

PATIENT
  Age: 15 Year
  Sex: Female
  Weight: 55 kg

DRUGS (4)
  1. IBUPROFEN. [Suspect]
     Active Substance: IBUPROFEN
     Indication: TOXICITY TO VARIOUS AGENTS
     Dosage: 8 DF, UNK
     Route: 048
     Dates: start: 20181211, end: 20181211
  2. PARACETAMOL [Suspect]
     Active Substance: ACETAMINOPHEN
     Indication: TOXICITY TO VARIOUS AGENTS
     Dosage: 16 DF, UNK
     Route: 048
     Dates: start: 20181211, end: 20181211
  3. INSULINE [Suspect]
     Active Substance: INSULIN NOS
     Indication: TOXICITY TO VARIOUS AGENTS
     Dosage: 55 UNITS
     Route: 058
     Dates: start: 20181211, end: 20181211
  4. KETOPROFENE [Suspect]
     Active Substance: KETOPROFEN
     Indication: TOXICITY TO VARIOUS AGENTS
     Dosage: UNK, (BETWEEN 18 MG/KG AND 39MG/KG)
     Route: 048
     Dates: start: 20181211, end: 20181211

REACTIONS (2)
  - Product use in unapproved indication [Unknown]
  - Vomiting [Recovered/Resolved]

NARRATIVE: CASE EVENT DATE: 20181211
